FAERS Safety Report 17012364 (Version 2)
Quarter: 2019Q4

REPORT INFORMATION
  Report Type: Spontaneous
  Country: CN (occurrence: CN)
  Receive Date: 20191108
  Receipt Date: 20191124
  Transmission Date: 20200122
  Serious: Yes (Other)
  Sender: FDA-Public Use
  Company Number: CN-009507513-1911CHN001906

PATIENT
  Age: 2 Year
  Sex: Female
  Weight: 12 kg

DRUGS (6)
  1. GLUCOSE INJECTION [Concomitant]
     Active Substance: DEXTROSE
     Dosage: 50 ML, QD
     Route: 041
     Dates: start: 20191026, end: 20191027
  2. SINGULAIR [Suspect]
     Active Substance: MONTELUKAST SODIUM
     Indication: COUGH
     Dosage: 4 MG/DAY
     Route: 048
     Dates: start: 20191023, end: 20191028
  3. GLUCOSE INJECTION [Concomitant]
     Active Substance: DEXTROSE
     Indication: MEDICATION DILUTION
     Dosage: 200 ML, QD
     Route: 041
     Dates: start: 20191023, end: 20191027
  4. ZITHROMAX [Suspect]
     Active Substance: AZITHROMYCIN DIHYDRATE
     Indication: PNEUMONIA MYCOPLASMAL
     Dosage: 0.12 G, QD
     Route: 041
     Dates: start: 20191023, end: 20191027
  5. SOLU-MEDROL [Suspect]
     Active Substance: METHYLPREDNISOLONE SODIUM SUCCINATE
     Indication: PNEUMONIA MYCOPLASMAL
     Dosage: 20 MG, QD
     Route: 041
     Dates: start: 20191026, end: 20191027
  6. BRICANYL [Concomitant]
     Active Substance: TERBUTALINE SULFATE
     Indication: COUGH
     Dosage: 2.5 MG, QD
     Dates: start: 20191024, end: 20191028

REACTIONS (6)
  - Dysphoria [Recovering/Resolving]
  - Cough [Unknown]
  - Aggression [Recovering/Resolving]
  - Poor quality sleep [Unknown]
  - Irritability [Recovering/Resolving]
  - Product use in unapproved indication [Unknown]

NARRATIVE: CASE EVENT DATE: 20191023
